FAERS Safety Report 7575311-1 (Version None)
Quarter: 2011Q2

REPORT INFORMATION
  Report Type: 
  Country: None (occurrence: None)
  Receive Date: 20110627
  Receipt Date: 20110617
  Transmission Date: 20111010
  Serious: Yes (Other)
  Sender: FDA-Public Use
  Company Number: US-US-EMD SERONO, INC.-7051704

PATIENT
  Sex: Female
  Weight: 54 kg

DRUGS (2)
  1. REBIF [Suspect]
     Indication: MULTIPLE SCLEROSIS
     Route: 058
     Dates: start: 20080912, end: 20110501
  2. FAZANIDINE [Concomitant]
     Indication: MUSCLE RELAXANT THERAPY

REACTIONS (7)
  - RENAL CYST [None]
  - HEPATIC NEOPLASM MALIGNANT [None]
  - BLADDER DISORDER [None]
  - NAUSEA [None]
  - RESTLESS LEGS SYNDROME [None]
  - VOMITING [None]
  - LUNG NEOPLASM MALIGNANT [None]
